FAERS Safety Report 20462659 (Version 1)
Quarter: 2022Q1

REPORT INFORMATION
  Report Type: Spontaneous
  Country: US (occurrence: US)
  Receive Date: 20220211
  Receipt Date: 20220211
  Transmission Date: 20220424
  Serious: Yes (Other)
  Sender: FDA-Public Use
  Company Number: US-ELI_LILLY_AND_COMPANY-US202202000966

PATIENT
  Sex: Female

DRUGS (1)
  1. TRULICITY [Suspect]
     Active Substance: DULAGLUTIDE
     Indication: Product used for unknown indication
     Dosage: 0.75 MG, UNKNOWN
     Route: 065
     Dates: start: 2021

REACTIONS (18)
  - Cataract [Recovered/Resolved]
  - Basedow^s disease [Unknown]
  - Vision blurred [Unknown]
  - Thyroid disorder [Unknown]
  - Hyperhidrosis [Unknown]
  - Exophthalmos [Unknown]
  - Eye swelling [Unknown]
  - Ocular hyperaemia [Unknown]
  - Rhinorrhoea [Unknown]
  - Headache [Unknown]
  - Back pain [Unknown]
  - Anxiety [Unknown]
  - Renal disorder [Unknown]
  - Pruritus [Unknown]
  - Rash [Unknown]
  - Abdominal pain [Unknown]
  - Dyspepsia [Unknown]
  - Lip swelling [Unknown]
